FAERS Safety Report 19071114 (Version 1)
Quarter: 2021Q1

REPORT INFORMATION
  Report Type: Report from Study
  Country: None (occurrence: US)
  Receive Date: 20210330
  Receipt Date: 20210330
  Transmission Date: 20210420
  Serious: Yes (Other)
  Sender: FDA-Public Use
  Company Number: US-ABBVIE-21K-163-3831684-00

PATIENT
  Age: 63 Year
  Sex: Female

DRUGS (2)
  1. HUMIRA [Suspect]
     Active Substance: ADALIMUMAB
     Indication: RHEUMATOID ARTHRITIS
     Route: 058
     Dates: start: 20200904
  2. HUMIRA [Suspect]
     Active Substance: ADALIMUMAB
     Route: 058
     Dates: start: 20210317

REACTIONS (9)
  - Musculoskeletal stiffness [Unknown]
  - Stem cell therapy [Unknown]
  - Arthralgia [Not Recovered/Not Resolved]
  - Loss of personal independence in daily activities [Unknown]
  - Pain in extremity [Recovering/Resolving]
  - Pain [Unknown]
  - Discomfort [Unknown]
  - Joint stiffness [Not Recovered/Not Resolved]
  - Gait disturbance [Unknown]

NARRATIVE: CASE EVENT DATE: 202101
